FAERS Safety Report 5918308-7 (Version None)
Quarter: 2008Q4

REPORT INFORMATION
  Report Type: 
  Country: None (occurrence: None)
  Receive Date: 20081010
  Receipt Date: 20080912
  Transmission Date: 20090506
  Serious: Yes (Other)
  Sender: FDA-Public Use
  Company Number: 2008-00008

PATIENT

DRUGS (1)
  1. CLEAN + CLEAR PERSA-GEL, MAXIMUM STRENGTH [Suspect]
     Indication: ACNE
     Dosage: TOPICAL
     Route: 061

REACTIONS (2)
  - HEPATIC ENZYME INCREASED [None]
  - LIVER DISORDER [None]
